FAERS Safety Report 6905165-5 (Version None)
Quarter: 2010Q3

REPORT INFORMATION
  Report Type: 
  Country: None (occurrence: None)
  Receive Date: 20100804
  Receipt Date: 20091013
  Transmission Date: 20110219
  Serious: Yes (Other)
  Sender: FDA-Public Use
  Company Number: US-PFIZER INC-2009243915

PATIENT

DRUGS (1)
  1. LYRICA [Suspect]
     Indication: CONVULSION
     Dosage: UNK

REACTIONS (1)
  - SUICIDAL IDEATION [None]
